FAERS Safety Report 6184106-5 (Version None)
Quarter: 2009Q2

REPORT INFORMATION
  Report Type: 
  Country: None (occurrence: None)
  Receive Date: 20090506
  Receipt Date: 20090506
  Transmission Date: 20091009
  Serious: No
  Sender: FDA-Public Use
  Company Number: None

PATIENT
  Age: 51 Year
  Sex: Female
  Weight: 59.4212 kg

DRUGS (1)
  1. KENALOG [Suspect]
     Indication: RHINITIS
     Dosage: 40 MG 1 IM  I DOSE
     Route: 030
     Dates: start: 20081119, end: 20081119

REACTIONS (2)
  - MYALGIA [None]
  - SKIN DISORDER [None]
